FAERS Safety Report 8338214-0 (Version None)
Quarter: 2012Q2

REPORT INFORMATION
  Report Type: 
  Country: None (occurrence: None)
  Receive Date: 20120504
  Receipt Date: 20120425
  Transmission Date: 20120825
  Serious: Yes (Other)
  Sender: FDA-Public Use
  Company Number: US-ASTRAZENECA-2012SE26890

PATIENT
  Sex: Female

DRUGS (2)
  1. ATACAND [Suspect]
     Indication: HYPERTENSION
     Route: 048
  2. LISINOPRIL [Suspect]
     Dosage: HALF DOSE
     Route: 048

REACTIONS (4)
  - LOSS OF CONSCIOUSNESS [None]
  - DRUG HYPERSENSITIVITY [None]
  - HYPERSENSITIVITY [None]
  - THROAT TIGHTNESS [None]
